FAERS Safety Report 12359393 (Version 2)
Quarter: 2016Q2

REPORT INFORMATION
  Report Type: Report from Study
  Country: US (occurrence: US)
  Receive Date: 20160512
  Receipt Date: 20160616
  Transmission Date: 20160815
  Serious: Yes (Death, Other)
  Sender: FDA-Public Use
  Company Number: US-BRISTOL-MYERS SQUIBB COMPANY-BMS-2016-035425

PATIENT
  Age: 71 Year
  Sex: Male
  Weight: 89 kg

DRUGS (2)
  1. IPILIMUMAB [Suspect]
     Active Substance: IPILIMUMAB
     Indication: B-CELL LYMPHOMA
     Dosage: 3 MG/KG, UNK
     Route: 042
     Dates: start: 20150730, end: 20150813
  2. RITUXIMAB [Suspect]
     Active Substance: RITUXIMAB
     Indication: B-CELL LYMPHOMA
     Dosage: 375 MG/M2, Q12 WEEKS 3278MG
     Route: 042
     Dates: start: 20150730, end: 20150820

REACTIONS (4)
  - Fall [Unknown]
  - Lymphocyte count decreased [Unknown]
  - Facial bones fracture [Unknown]
  - Malignant neoplasm progression [Fatal]
